FAERS Safety Report 20643683 (Version 1)
Quarter: 2022Q1

REPORT INFORMATION
  Report Type: Spontaneous
  Country: US (occurrence: US)
  Receive Date: 20220328
  Receipt Date: 20220328
  Transmission Date: 20220424
  Serious: Yes (Other)
  Sender: FDA-Public Use
  Company Number: US-UCBSA-2022018164

PATIENT
  Age: 7 Year
  Sex: Male

DRUGS (4)
  1. BRIVIACT [Suspect]
     Active Substance: BRIVARACETAM
     Indication: Epilepsy
     Dosage: UNK
     Dates: start: 20201216, end: 202102
  2. BRIVIACT [Suspect]
     Active Substance: BRIVARACETAM
     Dosage: UNK
     Dates: start: 202102, end: 202106
  3. BRIVIACT [Suspect]
     Active Substance: BRIVARACETAM
     Dosage: BRIVIACT DOSE WAS INCREASED
     Dates: start: 202106
  4. ZONISAMIDE [Concomitant]
     Active Substance: ZONISAMIDE
     Indication: Epilepsy
     Dosage: UNK

REACTIONS (6)
  - Seizure [Unknown]
  - Visual impairment [Recovered/Resolved]
  - Attention deficit hyperactivity disorder [Unknown]
  - Dyslexia [Unknown]
  - Insurance issue [Unknown]
  - Therapy interrupted [Unknown]

NARRATIVE: CASE EVENT DATE: 20201224
